FAERS Safety Report 12651759 (Version 3)
Quarter: 2016Q3

REPORT INFORMATION
  Report Type: Report from Study
  Country: GB (occurrence: GB)
  Receive Date: 20160815
  Receipt Date: 20160906
  Transmission Date: 20161109
  Serious: Yes (Hospitalization)
  Sender: FDA-Public Use
  Company Number: GB-B.I. PHARMACEUTICALS,INC./RIDGEFIELD-2016-BI-51431BI

PATIENT
  Age: 67 Year
  Sex: Female
  Weight: 78.8 kg

DRUGS (6)
  1. RAMIPRIL. [Concomitant]
     Active Substance: RAMIPRIL
     Indication: DRUG THERAPY
     Dosage: 10 MG
     Route: 048
  2. LIPITOR [Concomitant]
     Active Substance: ATORVASTATIN CALCIUM
     Indication: DRUG THERAPY
     Dosage: 20 MG
     Route: 048
     Dates: start: 20160620
  3. ARCOXIA [Concomitant]
     Active Substance: ETORICOXIB
     Indication: DRUG THERAPY
     Dosage: 60 MG
     Route: 048
     Dates: start: 20160720
  4. DABIGATRAN [Suspect]
     Active Substance: DABIGATRAN
     Indication: ATRIAL FIBRILLATION
     Dosage: 300 MG
     Route: 048
     Dates: start: 20160629
  5. INDAPAMIDE. [Concomitant]
     Active Substance: INDAPAMIDE
     Indication: DRUG THERAPY
     Dosage: 1.5 MG
     Route: 048
  6. BISOPROLOL [Concomitant]
     Active Substance: BISOPROLOL
     Indication: DRUG THERAPY
     Dosage: 5 MG
     Route: 048

REACTIONS (1)
  - Renal impairment [Recovered/Resolved]

NARRATIVE: CASE EVENT DATE: 20160805
